FAERS Safety Report 19088328 (Version 1)
Quarter: 2021Q2

REPORT INFORMATION
  Report Type: Report from Study
  Country: IN (occurrence: IN)
  Receive Date: 20210402
  Receipt Date: 20210402
  Transmission Date: 20210717
  Serious: Yes (Death)
  Sender: FDA-Public Use
  Company Number: IN-ASTRAZENECA-2021A258772

PATIENT
  Age: 50 Year
  Sex: Female

DRUGS (1)
  1. LYNPARZA [Suspect]
     Active Substance: OLAPARIB
     Indication: OVARIAN CANCER
     Dosage: 400.0MG UNKNOWN
     Route: 048
     Dates: start: 20210309, end: 20210327

REACTIONS (1)
  - Death [Fatal]

NARRATIVE: CASE EVENT DATE: 20210327
